FAERS Safety Report 4869160-2 (Version None)
Quarter: 2005Q4

REPORT INFORMATION
  Report Type: 
  Country: None (occurrence: None)
  Receive Date: 20051227
  Receipt Date: 20051216
  Transmission Date: 20060501
  Serious: Yes (Disabling)
  Sender: FDA-Public Use
  Company Number: SEWYE248420DEC05

PATIENT
  Age: 46 Year
  Sex: Male

DRUGS (1)
  1. EFFEXOR [Suspect]
     Indication: DEPRESSION
     Dosage: 75 MG 1X PER 1 DAY
     Route: 048
     Dates: start: 20030320, end: 20050501

REACTIONS (2)
  - URINARY INCONTINENCE [None]
  - URINARY RETENTION [None]
